FAERS Safety Report 7426044-3 (Version None)
Quarter: 2011Q2

REPORT INFORMATION
  Report Type: 
  Country: None (occurrence: None)
  Receive Date: 20110420
  Receipt Date: 20110414
  Transmission Date: 20111010
  Serious: Yes (Hospitalization)
  Sender: FDA-Public Use
  Company Number: US-SANOFI-AVENTIS-2011SA012048

PATIENT
  Age: 81 Year
  Sex: Female
  Weight: 121.8 kg

DRUGS (9)
  1. COUMADIN [Concomitant]
     Indication: ATRIAL FIBRILLATION
  2. SYNTHROID [Concomitant]
  3. PLAVIX [Suspect]
     Indication: STENT PLACEMENT
     Route: 048
     Dates: start: 20100101
  4. LASIX [Concomitant]
  5. DIABETA [Suspect]
     Route: 048
     Dates: start: 20100601
  6. COZAAR [Concomitant]
     Indication: LEFT VENTRICULAR DYSFUNCTION
  7. ZOLOFT [Concomitant]
  8. METOPROLOL [Concomitant]
     Indication: LEFT VENTRICULAR DYSFUNCTION
  9. ZOCOR [Concomitant]
     Indication: CORONARY ARTERY DISEASE

REACTIONS (3)
  - BLOOD GLUCOSE INCREASED [None]
  - BRADYARRHYTHMIA [None]
  - SKIN HAEMORRHAGE [None]
